FAERS Safety Report 13273636 (Version 2)
Quarter: 2017Q1

REPORT INFORMATION
  Report Type: Spontaneous
  Country: US (occurrence: US)
  Receive Date: 20170227
  Receipt Date: 20170309
  Transmission Date: 20170428
  Serious: Yes (Other)
  Sender: FDA-Public Use
  Company Number: US-TORRENT-00002576

PATIENT
  Age: 34 Year
  Sex: Male
  Weight: 105 kg

DRUGS (23)
  1. PREGABALIN. [Concomitant]
     Active Substance: PREGABALIN
  2. ACICLOVIR [Concomitant]
     Active Substance: ACYCLOVIR
  3. PREDNISONE. [Concomitant]
     Active Substance: PREDNISONE
  4. BUDESONIDE. [Concomitant]
     Active Substance: BUDESONIDE
  5. CARVEDILOL. [Concomitant]
     Active Substance: CARVEDILOL
  6. OXYCODONE [Concomitant]
     Active Substance: OXYCODONE
  7. ONDANSETRON [Concomitant]
     Active Substance: ONDANSETRON
  8. CASPOFUNGIN ACETATE. [Concomitant]
     Active Substance: CASPOFUNGIN ACETATE
  9. METFORMIN [Concomitant]
     Active Substance: METFORMIN HYDROCHLORIDE
  10. AMLODIPINE [Suspect]
     Active Substance: AMLODIPINE BESYLATE
  11. TACROLIMUS. [Concomitant]
     Active Substance: TACROLIMUS
  12. INSULIN DETEMIR [Concomitant]
     Active Substance: INSULIN DETEMIR
  13. BUPROPION. [Concomitant]
     Active Substance: BUPROPION
  14. HYDROMORPHONE [Concomitant]
     Active Substance: HYDROMORPHONE
  15. URSODIOL. [Concomitant]
     Active Substance: URSODIOL
  16. LEVOFLOXACIN. [Concomitant]
     Active Substance: LEVOFLOXACIN
  17. INSULIN LISPRO [Concomitant]
     Active Substance: INSULIN LISPRO
  18. LORAZEPAM. [Concomitant]
     Active Substance: LORAZEPAM
  19. DAPSONE. [Concomitant]
     Active Substance: DAPSONE
  20. PANTOPRAZOLE [Concomitant]
     Active Substance: PANTOPRAZOLE SODIUM
  21. METHYLPREDNISOLONE. [Concomitant]
     Active Substance: METHYLPREDNISOLONE
  22. VALACICLOVIR [Concomitant]
     Active Substance: VALACYCLOVIR HYDROCHLORIDE
  23. PROMETHAZINE [Concomitant]
     Active Substance: PROMETHAZINE\PROMETHAZINE HYDROCHLORIDE

REACTIONS (1)
  - Drug-induced liver injury [Recovered/Resolved]
